FAERS Safety Report 11031647 (Version 1)
Quarter: 2015Q2

REPORT INFORMATION
  Report Type: Spontaneous
  Country: JP (occurrence: None)
  Receive Date: 20150413
  Receipt Date: 20150413
  Transmission Date: 20150821
  Serious: Yes (Hospitalization)
  Sender: FDA-Public Use
  Company Number: IPC201504-000195

PATIENT
  Age: 10 Year
  Sex: Male

DRUGS (2)
  1. SPIRONOLACTONE (SPIRONOLACTONE) (SPIRONOLACTONE) [Concomitant]
     Active Substance: SPIRONOLACTONE
  2. FUROSEMIDE (FUROSEMIDE) (FUROSEMIDE) [Suspect]
     Active Substance: FUROSEMIDE

REACTIONS (6)
  - Renal impairment [None]
  - Pleural effusion [None]
  - Ejection fraction decreased [None]
  - Generalised oedema [None]
  - Drug resistance [None]
  - Proteinuria [None]
